FAERS Safety Report 8786118 (Version 1)
Quarter: 2012Q4

REPORT INFORMATION
  Report Type: 
  Country: US (occurrence: US)
  Receive Date: 20120914
  Receipt Date: 20120914
  Transmission Date: 20130627
  Serious: Yes (Death, Other)
  Sender: FDA-Public Use
  Company Number: US-ROCHE-1111296

PATIENT
  Sex: Female

DRUGS (3)
  1. TARCEVA [Suspect]
     Indication: MALIGNANT NEOPLASM OF AMPULLA OF VATER
     Route: 065
  2. XELODA [Suspect]
     Indication: PRODUCT USED FOR UNKNOWN INDICATION
     Route: 065
  3. AVASTIN [Suspect]
     Indication: MALIGNANT NEOPLASM OF AMPULLA OF VATER
     Route: 065

REACTIONS (5)
  - Death [Fatal]
  - Metastases to liver [Unknown]
  - Anaemia [Unknown]
  - Disease progression [Unknown]
  - Drug intolerance [Unknown]
